FAERS Safety Report 22972733 (Version 2)
Quarter: 2024Q2

REPORT INFORMATION
  Report Type: Report from Study
  Country: US (occurrence: US)
  Receive Date: 20230922
  Receipt Date: 20240530
  Transmission Date: 20240716
  Serious: Yes (Hospitalization, Other)
  Sender: FDA-Public Use
  Company Number: US-BEH-2023158500

PATIENT
  Age: 58 Year
  Sex: Female
  Weight: 48.98 kg

DRUGS (7)
  1. HIZENTRA [Suspect]
     Active Substance: HUMAN IMMUNOGLOBULIN G
     Indication: Primary immunodeficiency syndrome
     Dosage: 6 GRAM, QW(1 GRAM VIAL)
     Route: 058
     Dates: start: 20191126
  2. HIZENTRA [Suspect]
     Active Substance: HUMAN IMMUNOGLOBULIN G
     Dosage: 6 GRAM, QW (4 GRAM VIAL)
     Route: 058
     Dates: start: 20191126, end: 20191126
  3. HIZENTRA [Suspect]
     Active Substance: HUMAN IMMUNOGLOBULIN G
     Dosage: 2 GRAM (6 GRAM TOTAL)
     Route: 058
     Dates: start: 20221231, end: 20221231
  4. HIZENTRA [Suspect]
     Active Substance: HUMAN IMMUNOGLOBULIN G
     Dosage: 4 GRAM, QW(6 GRAM TOTAL)
     Route: 058
     Dates: start: 20221231, end: 20221231
  5. HIZENTRA [Suspect]
     Active Substance: HUMAN IMMUNOGLOBULIN G
     Dosage: 2 GRAM (6 GRAM TOTAL)
     Route: 058
     Dates: start: 20230317
  6. HIZENTRA [Suspect]
     Active Substance: HUMAN IMMUNOGLOBULIN G
     Dosage: 6 GRAM, QW
     Route: 058
     Dates: start: 20191126
  7. HIZENTRA [Suspect]
     Active Substance: HUMAN IMMUNOGLOBULIN G
     Dosage: UNK
     Route: 065
     Dates: start: 20230129

REACTIONS (19)
  - Pneumonia [Recovered/Resolved]
  - Injection site pain [Unknown]
  - Therapy interrupted [Unknown]
  - Pruritus [Unknown]
  - Injection site swelling [Unknown]
  - Injection site pain [Unknown]
  - Bronchiectasis [Unknown]
  - Weight fluctuation [Unknown]
  - Vascular rupture [Unknown]
  - Cardiac disorder [Unknown]
  - Blood immunoglobulin G decreased [Unknown]
  - Intentional product use issue [Unknown]
  - Cellulitis [Unknown]
  - Erythema [Unknown]
  - Phlebitis [Unknown]
  - Nodule [Unknown]
  - Erythema [Unknown]
  - Insurance issue [Recovered/Resolved]
  - Lethargy [Recovered/Resolved]

NARRATIVE: CASE EVENT DATE: 20221231
